FAERS Safety Report 4386752-8 (Version None)
Quarter: 2004Q2

REPORT INFORMATION
  Report Type: 
  Country: None (occurrence: None)
  Receive Date: 20040629
  Receipt Date: 20040621
  Transmission Date: 20050107
  Serious: Yes (Disabling)
  Sender: FDA-Public Use
  Company Number: US-MERCK-0406USA02024

PATIENT
  Age: 79 Year
  Sex: Male

DRUGS (8)
  1. PACERONE [Concomitant]
     Route: 065
  2. COREG [Concomitant]
     Route: 065
  3. VASOTEC [Concomitant]
     Route: 065
  4. FUROSEMIDE [Concomitant]
     Route: 065
  5. LIPOZID [Concomitant]
     Route: 065
  6. ZOCOR [Suspect]
     Indication: BLOOD CHOLESTEROL INCREASED
     Route: 048
     Dates: start: 20020101, end: 20040101
  7. SPIRONOLACTONE [Concomitant]
     Route: 065
  8. WARFARIN [Concomitant]
     Route: 065

REACTIONS (2)
  - BALANCE DISORDER [None]
  - MUSCLE DISORDER [None]
